FAERS Safety Report 16179965 (Version 2)
Quarter: 2019Q3

REPORT INFORMATION
  Report Type: Spontaneous
  Country: JP (occurrence: JP)
  Receive Date: 20190410
  Receipt Date: 20190712
  Transmission Date: 20191004
  Serious: No
  Sender: FDA-Public Use
  Company Number: JP-EISAI MEDICAL RESEARCH-EC-2019-053985

PATIENT
  Sex: Female

DRUGS (1)
  1. LENVIMA [Suspect]
     Active Substance: LENVATINIB
     Indication: HEPATOCELLULAR CARCINOMA
     Dosage: DOSE AND FREQUENCY NOT PROVIDED.
     Route: 048

REACTIONS (2)
  - Fatigue [Unknown]
  - Decreased appetite [Unknown]
